FAERS Safety Report 4726131-4 (Version None)
Quarter: 2005Q3

REPORT INFORMATION
  Report Type: 
  Country: None (occurrence: None)
  Receive Date: 20050725
  Receipt Date: 20050712
  Transmission Date: 20060218
  Serious: Yes (Death, Hospitalization)
  Sender: FDA-Public Use
  Company Number: 2005091268

PATIENT
  Age: 74 Year
  Sex: Female

DRUGS (11)
  1. ZOLOFT [Suspect]
     Indication: DEPRESSION
     Dosage: 50 MG (50 MG, 1 IN 1 D), ORAL
     Route: 048
     Dates: start: 20050120, end: 20050512
  2. SOTALOL HCL [Concomitant]
  3. SIMVASTATIN [Concomitant]
  4. HYDROXYCHLOROQUINE SULFATE [Concomitant]
  5. DICLOFENAC SODIUM [Concomitant]
  6. BROMAZEPAM (BROMAZEPAM) [Concomitant]
  7. EMADINE (EMEDASTINE FUMARATE) [Concomitant]
  8. AMLODIPINE [Concomitant]
  9. LISINOPRIL [Concomitant]
  10. CARBASALATE CALCIUM    (CARBASALATE CALCIUM) [Concomitant]
  11. CLEMASTINE FUMARATE [Concomitant]

REACTIONS (6)
  - ERYTHEMA [None]
  - ERYTHEMA MULTIFORME [None]
  - GENERAL PHYSICAL HEALTH DETERIORATION [None]
  - PERIORBITAL OEDEMA [None]
  - SKIN DISORDER [None]
  - TOXIC EPIDERMAL NECROLYSIS [None]
